FAERS Safety Report 8908321 (Version 1)
Quarter: 2012Q4

REPORT INFORMATION
  Report Type: 
  Country: JP (occurrence: JP)
  Receive Date: 20121114
  Receipt Date: 20121114
  Transmission Date: 20130627
  Serious: Yes (Other)
  Sender: FDA-Public Use
  Company Number: PHHY2012JP104777

PATIENT
  Age: 90 Year
  Sex: Male

DRUGS (3)
  1. RIFAMPICIN SANDOZ [Suspect]
     Indication: TUBERCULOSIS
     Route: 048
  2. ISONIAZID [Concomitant]
     Indication: TUBERCULOSIS
  3. ETHAMBUTOL [Concomitant]
     Indication: TUBERCULOSIS

REACTIONS (2)
  - Hypothyroidism [Recovering/Resolving]
  - Pericardial effusion [Recovering/Resolving]
